FAERS Safety Report 10195324 (Version 1)
Quarter: 2014Q2

REPORT INFORMATION
  Report Type: Spontaneous
  Country: DE (occurrence: DE)
  Receive Date: 20140526
  Receipt Date: 20140526
  Transmission Date: 20141212
  Serious: Yes (Other)
  Sender: FDA-Public Use
  Company Number: DE-JNJFOC-20140512750

PATIENT
  Sex: Male

DRUGS (2)
  1. XARELTO [Suspect]
     Indication: CEREBROVASCULAR ACCIDENT PROPHYLAXIS
     Route: 048
     Dates: start: 201303
  2. XARELTO [Suspect]
     Indication: ATRIAL FIBRILLATION
     Route: 048
     Dates: start: 201303

REACTIONS (7)
  - Limb injury [Unknown]
  - Ear injury [Unknown]
  - Contusion [Unknown]
  - Ear haemorrhage [Unknown]
  - Haemorrhagic diathesis [Unknown]
  - Haemorrhage [Unknown]
  - Overdose [Unknown]
